FAERS Safety Report 9416304 (Version 1)
Quarter: 2013Q3

REPORT INFORMATION
  Report Type: Report from Study
  Country: DE (occurrence: DE)
  Receive Date: 20130724
  Receipt Date: 20130724
  Transmission Date: 20140515
  Serious: Yes (Hospitalization)
  Sender: FDA-Public Use
  Company Number: DE-BRISTOL-MYERS SQUIBB COMPANY-15919566

PATIENT
  Age: 80 Year
  Sex: Male

DRUGS (1)
  1. APIXABAN [Suspect]
     Indication: THROMBOSIS PROPHYLAXIS
     Dosage: INTERRUPTED 31MAY11; RESTARTED 14JUN11; INTERRUPTED 20JUN11; RESTARTED ON 23JUN11
     Route: 048
     Dates: start: 20100812

REACTIONS (2)
  - Haematuria [Recovered/Resolved]
  - Prostatic hypoplasia [Recovered/Resolved]
